FAERS Safety Report 4961867-1 (Version None)
Quarter: 2006Q2

REPORT INFORMATION
  Report Type: 
  Country: None (occurrence: None)
  Receive Date: 20060404
  Receipt Date: 20050630
  Transmission Date: 20061013
  Serious: Yes (Other)
  Sender: FDA-Public Use
  Company Number: US-AVENTIS-200515531US

PATIENT
  Sex: Male
  Weight: 79 kg

DRUGS (16)
  1. KETEK [Suspect]
     Indication: PHARYNGOLARYNGEAL PAIN
     Route: 048
     Dates: start: 20050523, end: 20050530
  2. KETEK [Suspect]
     Indication: COUGH
     Route: 048
     Dates: start: 20050523, end: 20050530
  3. NIASPAN [Concomitant]
     Indication: BLOOD CHOLESTEROL
     Dates: start: 20020101
  4. ECOTRIN [Concomitant]
     Dates: start: 20020101
  5. TOPROL-XL [Concomitant]
     Dates: start: 20020101
  6. ENALAPRIL MALEATE [Concomitant]
     Dates: start: 20020101
  7. FLOMAX [Concomitant]
     Indication: POLLAKIURIA
     Dates: start: 20050401
  8. MULTIVITAMINS, PLAIN [Concomitant]
     Dosage: DOSE: NOT PROVIDED
  9. COENZYME Q10 [Concomitant]
     Dosage: DOSE: NOT PROVIDED
  10. OMEGA 3 [Concomitant]
     Dosage: DOSE: NOT PROVIDED
  11. TPN [Concomitant]
     Dosage: DOSE: NOT PROVIDED
  12. SELENIUM SULFIDE [Concomitant]
  13. HIGH GAMMA VITAMIN E [Concomitant]
  14. ZOCOR [Concomitant]
     Indication: BLOOD CHOLESTEROL
     Route: 048
     Dates: start: 20030101, end: 20050523
  15. ZOCOR [Concomitant]
     Route: 048
     Dates: start: 20050501, end: 20050630
  16. ACETAMINOPHEN [Concomitant]
     Dosage: DOSE: UNK

REACTIONS (5)
  - ALANINE AMINOTRANSFERASE INCREASED [None]
  - ASPARTATE AMINOTRANSFERASE INCREASED [None]
  - BLOOD BILIRUBIN INCREASED [None]
  - C-REACTIVE PROTEIN INCREASED [None]
  - FATIGUE [None]
